FAERS Safety Report 8831588 (Version 1)
Quarter: 2012Q4

REPORT INFORMATION
  Report Type: 
  Country: GB (occurrence: GB)
  Receive Date: 20121009
  Receipt Date: 20121009
  Transmission Date: 20130627
  Serious: Yes (Other)
  Sender: FDA-Public Use
  Company Number: GB-TEVA-361943ISR

PATIENT
  Age: 43 Year
  Sex: Female
  Weight: 95.25 kg

DRUGS (4)
  1. METOCLOPRAMIDE [Suspect]
     Indication: DYSPEPSIA
     Dosage: 2 Dosage forms Daily; not sure of dosage but was taking one table at morning and one tablet at night
     Route: 048
     Dates: start: 20120826, end: 20120829
  2. LEVETIRACETAM [Concomitant]
     Indication: EPILEPSY
  3. OMEPRAZOLE [Concomitant]
  4. CITALOPRAM [Concomitant]

REACTIONS (7)
  - Somnolence [Recovered/Resolved]
  - Headache [Recovered/Resolved]
  - Photophobia [Recovered/Resolved]
  - Confusional state [Recovered/Resolved]
  - Disturbance in attention [Recovered/Resolved]
  - Feeling abnormal [Recovered/Resolved]
  - Fatigue [Recovered/Resolved]
